FAERS Safety Report 19856179 (Version 1)
Quarter: 2021Q3

REPORT INFORMATION
  Report Type: Spontaneous
  Country: CA (occurrence: CA)
  Receive Date: 20210920
  Receipt Date: 20210920
  Transmission Date: 20211014
  Serious: Yes (Other)
  Sender: FDA-Public Use
  Company Number: CA-TEVA-2021-CA-1954282

PATIENT
  Age: 79 Year
  Sex: Male

DRUGS (18)
  1. AVAMYS [Suspect]
     Active Substance: FLUTICASONE FUROATE
     Route: 065
  2. AVAMYS [Suspect]
     Active Substance: FLUTICASONE FUROATE
     Route: 065
  3. AVAMYS [Suspect]
     Active Substance: FLUTICASONE FUROATE
     Route: 065
  4. VENTOLIN [Suspect]
     Active Substance: ALBUTEROL SULFATE
     Indication: PRODUCT USED FOR UNKNOWN INDICATION
     Route: 065
  5. ROSUVASTATIN. [Concomitant]
     Active Substance: ROSUVASTATIN
  6. TYLENOL [Concomitant]
     Active Substance: ACETAMINOPHEN
  7. MONTELUKAST [Suspect]
     Active Substance: MONTELUKAST SODIUM
     Indication: PRODUCT USED FOR UNKNOWN INDICATION
     Dosage: 10 MILLIGRAM DAILY;
     Route: 065
  8. AVAMYS [Suspect]
     Active Substance: FLUTICASONE FUROATE
     Route: 065
  9. CETIRIZINE [Suspect]
     Active Substance: CETIRIZINE HYDROCHLORIDE
     Indication: PRODUCT USED FOR UNKNOWN INDICATION
     Route: 065
  10. AVAMYS [Suspect]
     Active Substance: FLUTICASONE FUROATE
     Indication: UPPER-AIRWAY COUGH SYNDROME
     Route: 065
  11. AVAMYS [Suspect]
     Active Substance: FLUTICASONE FUROATE
     Route: 065
  12. NUCALA [Suspect]
     Active Substance: MEPOLIZUMAB
     Indication: ASTHMA
     Route: 065
  13. BUDESONIDE/FORMOTEROL FUMARATE [Suspect]
     Active Substance: BUDESONIDE\FORMOTEROL FUMARATE
     Indication: PRODUCT USED FOR UNKNOWN INDICATION
     Route: 055
  14. CALCIUM CARBONATE/SODIUM/VITAMIN D3 [Concomitant]
     Active Substance: CALCIUM CARBONATE\CHOLECALCIFEROL
  15. NIFEDIPINE. [Concomitant]
     Active Substance: NIFEDIPINE
  16. AVAMYS [Suspect]
     Active Substance: FLUTICASONE FUROATE
     Indication: NASAL CONGESTION
     Route: 065
  17. AVAMYS [Suspect]
     Active Substance: FLUTICASONE FUROATE
     Route: 065
  18. VALSARTAN. [Concomitant]
     Active Substance: VALSARTAN

REACTIONS (16)
  - Balance disorder [Unknown]
  - Dyspnoea [Unknown]
  - Drug ineffective [Unknown]
  - Asthma [Unknown]
  - Cough [Unknown]
  - Middle insomnia [Unknown]
  - Lower respiratory tract infection [Unknown]
  - Mobility decreased [Unknown]
  - Chest discomfort [Unknown]
  - Rhinitis [Unknown]
  - Blood count abnormal [Unknown]
  - Gait disturbance [Unknown]
  - Sinusitis [Unknown]
  - Musculoskeletal disorder [Unknown]
  - Productive cough [Unknown]
  - Wheezing [Unknown]
